FAERS Safety Report 7803361-6 (Version None)
Quarter: 2011Q4

REPORT INFORMATION
  Report Type: 
  Country: None (occurrence: None)
  Receive Date: 20111007
  Receipt Date: 20111003
  Transmission Date: 20120403
  Serious: Yes (Death, Hospitalization, Other)
  Sender: FDA-Public Use
  Company Number: PHEH2008US06422

PATIENT
  Sex: Female

DRUGS (21)
  1. FOSAMAX [Concomitant]
  2. DECADRON [Concomitant]
  3. ZOMETA [Suspect]
     Indication: OSTEOPOROSIS
     Dosage: UNK UKN, QMO
  4. LORAZEPAM [Concomitant]
  5. PROTONIX [Concomitant]
  6. PROTONIX [Concomitant]
  7. REGLAN [Concomitant]
  8. GLUCOVANCE [Concomitant]
  9. ZOMETA [Suspect]
     Indication: METASTASES TO BONE
  10. RITALIN [Concomitant]
  11. LASIX [Concomitant]
  12. CRESTOR [Concomitant]
  13. TORADOL [Concomitant]
     Route: 030
  14. DEXAMETHASONE [Concomitant]
     Dosage: 2 MG, BID
  15. COUMADIN [Concomitant]
  16. AREDIA [Suspect]
     Indication: NEOPLASM MALIGNANT
     Dosage: 90 MG, QMO
     Route: 042
  17. HUMALOG [Concomitant]
     Dosage: 60 U, BID
  18. ZOFRAN [Concomitant]
  19. PROZAC [Concomitant]
  20. HYDROCODONE BITARTRATE [Concomitant]
  21. NORCO [Concomitant]

REACTIONS (63)
  - LOOSE TOOTH [None]
  - ANXIETY [None]
  - METASTASES TO LYMPH NODES [None]
  - OSTEOMYELITIS [None]
  - GASTROOESOPHAGEAL REFLUX DISEASE [None]
  - ORAL CANDIDIASIS [None]
  - DEPRESSION [None]
  - HYPERTENSION [None]
  - HEADACHE [None]
  - UPPER RESPIRATORY TRACT INFECTION [None]
  - OSTEOARTHRITIS [None]
  - DIABETIC NEUROPATHY [None]
  - FACIAL PAIN [None]
  - SWELLING [None]
  - EXPOSED BONE IN JAW [None]
  - OEDEMA PERIPHERAL [None]
  - PAIN IN EXTREMITY [None]
  - VAGINAL DISCHARGE [None]
  - OSTEITIS [None]
  - NEUROPATHY PERIPHERAL [None]
  - HYPONATRAEMIA [None]
  - DEHYDRATION [None]
  - TOOTH LOSS [None]
  - POLYURIA [None]
  - NAUSEA [None]
  - DYSPNOEA [None]
  - DEPRESSED LEVEL OF CONSCIOUSNESS [None]
  - GENERAL PHYSICAL HEALTH DETERIORATION [None]
  - ORAL PAIN [None]
  - INJURY [None]
  - HAEMORRHAGIC DIATHESIS [None]
  - CONVULSION [None]
  - VISION BLURRED [None]
  - MYALGIA [None]
  - BACK PAIN [None]
  - OBESITY [None]
  - CELLULITIS [None]
  - OSTEONECROSIS OF JAW [None]
  - BREATH ODOUR [None]
  - METASTASES TO CENTRAL NERVOUS SYSTEM [None]
  - PULMONARY EMBOLISM [None]
  - VERTIGO [None]
  - FUNGAL INFECTION [None]
  - FAILURE TO THRIVE [None]
  - INSOMNIA [None]
  - ORAL DISCHARGE [None]
  - DYSLIPIDAEMIA [None]
  - MENTAL STATUS CHANGES [None]
  - IRRITABILITY [None]
  - DIZZINESS [None]
  - HYPOKALAEMIA [None]
  - CONFUSIONAL STATE [None]
  - HYPOAESTHESIA [None]
  - PARAESTHESIA [None]
  - NEOPLASM PROGRESSION [None]
  - METASTASES TO BONE [None]
  - DEEP VEIN THROMBOSIS [None]
  - VOMITING [None]
  - CONSTIPATION [None]
  - ACUTE SINUSITIS [None]
  - VOCAL CORD PARALYSIS [None]
  - ALOPECIA [None]
  - URINARY INCONTINENCE [None]
